FAERS Safety Report 6006341-9 (Version None)
Quarter: 2008Q4

REPORT INFORMATION
  Report Type: 
  Country: None (occurrence: None)
  Receive Date: 20081217
  Receipt Date: 20081212
  Transmission Date: 20090506
  Serious: Yes (Life-Threatening, Hospitalization, Disabling, Other)
  Sender: FDA-Public Use
  Company Number: B0550635A

PATIENT
  Age: 43 Year
  Sex: Male
  Weight: 62 kg

DRUGS (4)
  1. IMIGRAN [Suspect]
     Indication: MIGRAINE
     Route: 048
     Dates: start: 19880101
  2. CIPRAMIL [Suspect]
     Indication: PERSONALITY DISORDER
     Route: 048
     Dates: start: 20061021, end: 20070601
  3. PAROXETINE HCL [Suspect]
     Indication: DRUG USE FOR UNKNOWN INDICATION
     Route: 065
  4. DULOXETINE [Concomitant]
     Indication: DRUG USE FOR UNKNOWN INDICATION
     Route: 065

REACTIONS (11)
  - ABNORMAL DREAMS [None]
  - ADVERSE REACTION [None]
  - AGITATION [None]
  - ANXIETY [None]
  - DEPERSONALISATION [None]
  - DIARRHOEA [None]
  - HYPERHIDROSIS [None]
  - RASH [None]
  - SUICIDAL IDEATION [None]
  - SUICIDE ATTEMPT [None]
  - VOMITING [None]
